FAERS Safety Report 12423209 (Version 1)
Quarter: 2016Q2

REPORT INFORMATION
  Report Type: Spontaneous
  Country: US (occurrence: None)
  Receive Date: 20160531
  Receipt Date: 20160531
  Transmission Date: 20160815
  Serious: Yes (Hospitalization)
  Sender: FDA-Public Use
  Company Number: None

PATIENT
  Age: 84 Year
  Sex: Female
  Weight: 61.24 kg

DRUGS (8)
  1. OXIBUTININ [Concomitant]
  2. DESMOPRESSIN 2MG TAB [Suspect]
     Active Substance: DESMOPRESSIN
     Indication: POLLAKIURIA
     Dosage: 1/2 PILL ONCE DAILY MOUTH
     Route: 048
     Dates: start: 20150423, end: 20150428
  3. LEVOTHYROXINE. [Concomitant]
     Active Substance: LEVOTHYROXINE
  4. MULTIVITAMIN [Concomitant]
     Active Substance: VITAMINS
  5. VITAMIN D3 [Concomitant]
     Active Substance: CHOLECALCIFEROL
  6. OSTEO-BI-FLEX [Concomitant]
  7. CALCIUM [Concomitant]
     Active Substance: CALCIUM
  8. FISH OIL [Concomitant]
     Active Substance: FISH OIL

REACTIONS (2)
  - Abdominal pain upper [None]
  - Hyponatraemia [None]

NARRATIVE: CASE EVENT DATE: 20150404
